FAERS Safety Report 17242807 (Version 1)
Quarter: 2020Q1

REPORT INFORMATION
  Report Type: Report from Study
  Country: US (occurrence: US)
  Receive Date: 20200107
  Receipt Date: 20200107
  Transmission Date: 20200409
  Serious: Yes (Hospitalization)
  Sender: FDA-Public Use
  Company Number: US-TEVA-2020-US-1163157

PATIENT
  Age: 3 Year
  Sex: Male

DRUGS (3)
  1. VANCOMYCIN [Suspect]
     Active Substance: VANCOMYCIN
     Indication: ANTIBIOTIC THERAPY
     Route: 065
  2. CEFAZOLIN [Suspect]
     Active Substance: CEFAZOLIN
     Indication: ANTIBIOTIC THERAPY
     Route: 065
  3. CEFALEXIN [Suspect]
     Active Substance: CEPHALEXIN
     Indication: ANTIBIOTIC THERAPY
     Route: 065

REACTIONS (1)
  - Drug reaction with eosinophilia and systemic symptoms [Unknown]
